FAERS Safety Report 16001426 (Version 1)
Quarter: 2019Q1

REPORT INFORMATION
  Report Type: Spontaneous
  Country: FR (occurrence: FR)
  Receive Date: 20190225
  Receipt Date: 20190225
  Transmission Date: 20190418
  Serious: Yes (Life-Threatening, Other)
  Sender: FDA-Public Use
  Company Number: FR-JNJFOC-20190233723

PATIENT
  Age: 17 Year
  Sex: Female

DRUGS (1)
  1. TRAMADOL HYDROCHLORIDE. [Suspect]
     Active Substance: TRAMADOL HYDROCHLORIDE
     Indication: PRODUCT USED FOR UNKNOWN INDICATION
     Route: 048
     Dates: start: 20190130, end: 20190130

REACTIONS (4)
  - Disturbance in attention [Recovered/Resolved]
  - Intentional overdose [Recovered/Resolved]
  - Poisoning deliberate [Recovered/Resolved]
  - Respiratory arrest [Recovered/Resolved]

NARRATIVE: CASE EVENT DATE: 20190130
